FAERS Safety Report 9152483 (Version 1)
Quarter: 2013Q1

REPORT INFORMATION
  Report Type: Spontaneous
  Country: US (occurrence: US)
  Receive Date: 20130308
  Receipt Date: 20130308
  Transmission Date: 20140127
  Serious: No
  Sender: FDA-Public Use
  Company Number: US-MUTUAL PHARMACEUTICAL COMPANY, INC.-ALLP20120024

PATIENT
  Sex: Male
  Weight: 142.56 kg

DRUGS (6)
  1. ALLOPURINOL [Suspect]
     Indication: BLOOD URIC ACID INCREASED
     Route: 048
     Dates: start: 2009, end: 2012
  2. ALLOPURINOL [Suspect]
     Indication: GOUT
  3. HYDROCHLOROTHIAZIDE [Concomitant]
     Indication: HYPERTENSION
     Route: 065
  4. SINGULAIR [Concomitant]
     Indication: ASTHMA
     Route: 065
  5. ADVAIR [Concomitant]
     Indication: ASTHMA
     Route: 065
  6. AVAPRO [Concomitant]
     Indication: HYPERTENSION
     Route: 065

REACTIONS (5)
  - Drug ineffective [None]
  - Pain [Recovered/Resolved]
  - Weight decreased [Not Recovered/Not Resolved]
  - Dizziness [Recovered/Resolved]
  - Abdominal discomfort [Recovered/Resolved]
